FAERS Safety Report 9880306 (Version 2)
Quarter: 2014Q1

REPORT INFORMATION
  Report Type: Spontaneous
  Country: US (occurrence: US)
  Receive Date: 20140207
  Receipt Date: 20140303
  Transmission Date: 20141002
  Serious: Yes (Death, Hospitalization)
  Sender: FDA-Public Use
  Company Number: US-AMGEN-USASP2014008168

PATIENT
  Age: 81 Year
  Sex: Female
  Weight: 53.52 kg

DRUGS (3)
  1. PROLIA [Suspect]
     Indication: OSTEOPOROSIS POSTMENOPAUSAL
     Dosage: 60 MG, Q6MO
     Route: 065
     Dates: start: 20130206
  2. PREDNISONE [Concomitant]
     Dosage: 5 MG, UNK
  3. PLAVIX [Concomitant]

REACTIONS (3)
  - Cardiac failure congestive [Fatal]
  - Embolism [Unknown]
  - Gangrene [Unknown]
